FAERS Safety Report 10503628 (Version 1)
Quarter: 2014Q4

REPORT INFORMATION
  Report Type: Spontaneous
  Country: IT (occurrence: None)
  Receive Date: 20141003
  Receipt Date: 20141003
  Transmission Date: 20150528
  Serious: Yes (Hospitalization)
  Sender: FDA-Public Use
  Company Number: IT-014084

PATIENT
  Age: 84 Year
  Sex: Male
  Weight: 64 kg

DRUGS (1)
  1. FIRMAGON [Suspect]
     Active Substance: DEGARELIX ACETATE
     Indication: PROSTATE CANCER
     Route: 058
     Dates: start: 20130108, end: 20130108

REACTIONS (4)
  - Deafness [None]
  - Vomiting [None]
  - Vertebrobasilar insufficiency [None]
  - Nausea [None]

NARRATIVE: CASE EVENT DATE: 20131115
